FAERS Safety Report 18465130 (Version 3)
Quarter: 2021Q1

REPORT INFORMATION
  Report Type: Spontaneous
  Country: PL (occurrence: PL)
  Receive Date: 20201104
  Receipt Date: 20210104
  Transmission Date: 20210419
  Serious: No
  Sender: FDA-Public Use
  Company Number: PL-TOLMAR, INC.-20PL023541

PATIENT
  Age: 69 Year
  Sex: Male
  Weight: 80 kg

DRUGS (3)
  1. ELIGARD [Suspect]
     Active Substance: LEUPROLIDE ACETATE
     Dosage: 45 MG, Q 6 MONTH
     Route: 058
  2. ELIGARD [Suspect]
     Active Substance: LEUPROLIDE ACETATE
     Indication: PROSTATE CANCER METASTATIC
     Dosage: 45 MG, Q 6 MONTH
     Route: 058
     Dates: start: 20201013
  3. LUTEINISING HORMONE [Concomitant]
     Indication: PRODUCT USED FOR UNKNOWN INDICATION
     Dosage: UNK
     Route: 065
     Dates: start: 2017

REACTIONS (3)
  - Intercepted product preparation error [Unknown]
  - Wrong technique in product usage process [Unknown]
  - Syringe issue [Unknown]

NARRATIVE: CASE EVENT DATE: 20201013
